FAERS Safety Report 25451172 (Version 1)
Quarter: 2025Q2

REPORT INFORMATION
  Report Type: Spontaneous
  Country: US (occurrence: None)
  Receive Date: 20250618
  Receipt Date: 20250618
  Transmission Date: 20250716
  Serious: Yes (Hospitalization, Disabling, Other)
  Sender: FDA-CTU
  Company Number: None

PATIENT
  Age: 59 Year
  Sex: Female
  Weight: 81 kg

DRUGS (1)
  1. ROZANOLIXIZUMAB-NOLI [Suspect]
     Active Substance: ROZANOLIXIZUMAB-NOLI
     Indication: Myasthenia gravis
     Route: 058
     Dates: start: 20250530, end: 20250530

REACTIONS (7)
  - Infusion related reaction [None]
  - Burning sensation [None]
  - Pulmonary embolism [None]
  - Dyspnoea [None]
  - Headache [None]
  - Asthenia [None]
  - Quality of life decreased [None]

NARRATIVE: CASE EVENT DATE: 20250530
